FAERS Safety Report 15132604 (Version 2)
Quarter: 2018Q4

REPORT INFORMATION
  Report Type: Report from Study
  Country: US (occurrence: US)
  Receive Date: 20180712
  Receipt Date: 20181205
  Transmission Date: 20190204
  Serious: No
  Sender: FDA-Public Use
  Company Number: US-BIOVERATIV-2018BV000453

PATIENT
  Sex: Male

DRUGS (1)
  1. ALPROLIX [Suspect]
     Active Substance: EFTRENONACOG ALFA
     Indication: FACTOR IX DEFICIENCY
     Dosage: SUMMER 2014
     Route: 065
     Dates: start: 2014

REACTIONS (2)
  - Product dose omission [Recovered/Resolved]
  - Haemarthrosis [Recovered/Resolved]
